FAERS Safety Report 16906931 (Version 2)
Quarter: 2021Q3

REPORT INFORMATION
  Report Type: Spontaneous
  Country: US (occurrence: US)
  Receive Date: 20191011
  Receipt Date: 20210917
  Transmission Date: 20211014
  Serious: No
  Sender: FDA-Public Use
  Company Number: US-APOTEX-2018AP024981

PATIENT
  Sex: Male

DRUGS (5)
  1. COUMADIN [Concomitant]
     Active Substance: WARFARIN SODIUM
     Indication: ANTICOAGULANT THERAPY
     Dosage: 3 MILLIGRAM, QD
     Route: 048
     Dates: start: 2005
  2. MYCOPHENOLIC ACID DELAYED RELEASE TABLETS [Suspect]
     Active Substance: MYCOPHENOLIC ACID
     Indication: RENAL TRANSPLANT
     Dosage: ONE TABLET IN THE MORNING AND 1 IN THE EVENING, BID
     Route: 048
     Dates: end: 201902
  3. MYCOPHENOLIC ACID DELAYED RELEASE TABLETS [Suspect]
     Active Substance: MYCOPHENOLIC ACID
     Indication: RENAL DISORDER
  4. TACROLIMUS. [Concomitant]
     Active Substance: TACROLIMUS
     Indication: KIDNEY TRANSPLANT REJECTION
     Dosage: 1MG IN THE MORNING AND 1 AND 1/2 IN THE EVENING
     Route: 048
     Dates: start: 2009, end: 2019
  5. ASPIRIN                            /00002701/ [Concomitant]
     Active Substance: ASPIRIN
     Indication: PRODUCT USED FOR UNKNOWN INDICATION
     Dosage: 81 MILLIGRAM, QD
     Route: 048
     Dates: start: 2005

REACTIONS (2)
  - Product residue present [Not Recovered/Not Resolved]
  - Product solubility abnormal [Not Recovered/Not Resolved]
